FAERS Safety Report 16288885 (Version 3)
Quarter: 2019Q2

REPORT INFORMATION
  Report Type: Spontaneous
  Country: EG (occurrence: EG)
  Receive Date: 20190509
  Receipt Date: 20190528
  Transmission Date: 20190711
  Serious: Yes (Death, Life-Threatening, Hospitalization, Other)
  Sender: FDA-Public Use
  Company Number: EG-SA-2018SA033258

PATIENT
  Age: 2 Year
  Sex: Female
  Weight: 9 kg

DRUGS (3)
  1. INDERAL [Concomitant]
     Active Substance: PROPRANOLOL HYDROCHLORIDE
     Dosage: 10 MG,QD
     Route: 065
     Dates: start: 201709
  2. DEXAMETHASONE. [Concomitant]
     Active Substance: DEXAMETHASONE
     Dosage: 2 MG,UNK
     Route: 065
     Dates: start: 20180131, end: 20180131
  3. MYOZYME [Suspect]
     Active Substance: ALGLUCOSIDASE ALFA
     Indication: GLYCOGEN STORAGE DISEASE TYPE II
     Dosage: QW
     Route: 041
     Dates: start: 20171206, end: 20180131

REACTIONS (8)
  - Respiratory distress [Fatal]
  - Anaphylactic reaction [Recovered/Resolved]
  - Pneumonia [Fatal]
  - Rash [Recovered/Resolved]
  - Weaning failure [Unknown]
  - Hypoxia [Fatal]
  - Sepsis [Fatal]
  - Cardiac arrest [Fatal]

NARRATIVE: CASE EVENT DATE: 20180131
